FAERS Safety Report 21981160 (Version 1)
Quarter: 2023Q1

REPORT INFORMATION
  Report Type: Spontaneous
  Country: CH (occurrence: CH)
  Receive Date: 20230211
  Receipt Date: 20230211
  Transmission Date: 20230417
  Serious: Yes (Other)
  Sender: FDA-Public Use
  Company Number: None

PATIENT
  Sex: Male
  Weight: 82 kg

DRUGS (7)
  1. SOTALOL [Suspect]
     Active Substance: SOTALOL
     Indication: Tremor
     Route: 048
  2. INDERAL [Suspect]
     Active Substance: PROPRANOLOL HYDROCHLORIDE
     Indication: Tremor
     Route: 048
  3. ALLOPURINOL [Concomitant]
     Active Substance: ALLOPURINOL
     Indication: Product used for unknown indication
     Dosage: 100 MILLIGRAM DAILY; 1X/D
  4. DULOXETIN SANDOZ [Concomitant]
     Indication: Product used for unknown indication
     Dosage: 30 MILLIGRAM DAILY; 1X/D
  5. LISINOPRIL HELVEPHARM [Concomitant]
     Indication: Product used for unknown indication
     Dosage: 20 MILLIGRAM DAILY; 1X/D
  6. PANTOPRAZOL SPIRIG HC [Concomitant]
     Indication: Product used for unknown indication
     Dosage: 40 MILLIGRAM DAILY; 1X/D
  7. SIMVASTATIN HELVEPHARM [Concomitant]
     Indication: Product used for unknown indication
     Dosage: 40 MILLIGRAM DAILY; 1X/D

REACTIONS (1)
  - Epistaxis [Recovered/Resolved]
